FAERS Safety Report 21154129 (Version 1)
Quarter: 2022Q3

REPORT INFORMATION
  Report Type: Spontaneous
  Country: US (occurrence: US)
  Receive Date: 20220801
  Receipt Date: 20220801
  Transmission Date: 20221027
  Serious: No
  Sender: FDA-Public Use
  Company Number: US-BAUSCH-BL-2022-018756

PATIENT
  Sex: Female

DRUGS (2)
  1. ATIVAN [Suspect]
     Active Substance: LORAZEPAM
     Indication: Product used for unknown indication
     Route: 065
  2. BENADRYL [Concomitant]
     Active Substance: DIPHENHYDRAMINE HYDROCHLORIDE
     Indication: Product used for unknown indication
     Dosage: 4 BABY BENADRYL^S 2.5 BABY ONES BEFORE EACH ATIVAN PILL

REACTIONS (7)
  - Hyperhidrosis [Unknown]
  - Chills [Unknown]
  - Nightmare [Unknown]
  - Withdrawal syndrome [Unknown]
  - Malaise [Unknown]
  - Drug hypersensitivity [Unknown]
  - Product substitution issue [Unknown]
